FAERS Safety Report 9156692 (Version 2)
Quarter: 2013Q1

REPORT INFORMATION
  Report Type: Spontaneous
  Country: FR (occurrence: None)
  Receive Date: 20130325
  Receipt Date: 20130325
  Transmission Date: 20140127
  Serious: Yes (Hospitalization)
  Sender: FDA-Public Use
  Company Number: 2013000015

PATIENT
  Age: 83 Year
  Sex: Female

DRUGS (7)
  1. ACEON (PERINDOPRIL ERBUMINE) [Suspect]
     Indication: PRODUCT USED FOR UNKNOWN INDICATION
     Route: 048
     Dates: end: 20121031
  2. EUPANTOL [Suspect]
     Route: 048
  3. KARDEGIC [Suspect]
     Route: 048
  4. LAMALINE (CAFFEINE, PAPAVER SOMNIFERUM LATEX, PARACETAMOL) [Concomitant]
  5. SPASAFON (PHLOROGLUCINOL) [Concomitant]
  6. ACTISKENAN (MORPHINE SULFATE) [Concomitant]
  7. ISOPTINE (VERAPAMIL HYDROCHLORIDE) [Concomitant]

REACTIONS (9)
  - Renal failure [None]
  - General physical health deterioration [None]
  - Pain [None]
  - Hyponatraemia [None]
  - Nausea [None]
  - Vomiting [None]
  - Hyperkalaemia [None]
  - Hypotension [None]
  - Asthenia [None]
